FAERS Safety Report 8015399-7 (Version None)
Quarter: 2011Q4

REPORT INFORMATION
  Report Type: 
  Country: None (occurrence: None)
  Receive Date: 20111230
  Receipt Date: 20111222
  Transmission Date: 20120403
  Serious: Yes (Hospitalization, Other)
  Sender: FDA-Public Use
  Company Number: US-ASTELLAS-2011US007909

PATIENT
  Age: 65 Year
  Sex: Male
  Weight: 55 kg

DRUGS (8)
  1. ERLOTINIB HYDROCHLORIDE [Suspect]
     Indication: ADENOCARCINOMA PANCREAS
     Dosage: 100 MG, UID/QD
     Route: 048
     Dates: start: 20110805, end: 20111118
  2. ERLOTINIB HYDROCHLORIDE [Suspect]
     Dosage: 75 MG, UID/QD
     Route: 048
     Dates: start: 20111219
  3. METFORMIN HCL [Concomitant]
     Indication: DIABETES MELLITUS
     Dosage: UNK
     Route: 065
     Dates: end: 20111101
  4. METOPROLOL TARTRATE [Concomitant]
     Indication: HYPERTENSION
     Dosage: UNK
     Route: 065
  5. METOPROLOL TARTRATE [Concomitant]
     Indication: CORONARY ARTERY DISEASE
  6. INSULIN [Suspect]
     Indication: PRODUCT USED FOR UNKNOWN INDICATION
     Dosage: UNK
     Route: 065
  7. GEMCITABINE [Suspect]
     Indication: ADENOCARCINOMA PANCREAS
     Dosage: 1000 MG/M2, WEEKLY, WKS 1-3
     Route: 042
     Dates: start: 20110805, end: 20111118
  8. STATIN [Concomitant]
     Indication: CORONARY ARTERY DISEASE
     Dosage: UNK
     Route: 065

REACTIONS (22)
  - VOMITING [None]
  - SEPSIS [None]
  - HYPOTHYROIDISM [None]
  - DEHYDRATION [None]
  - HYPERMAGNESAEMIA [None]
  - ANAEMIA [None]
  - DIABETIC KETOACIDOSIS [None]
  - SYNCOPE [None]
  - FALL [None]
  - HYPERGLYCAEMIA [None]
  - FAILURE TO THRIVE [None]
  - WEIGHT DECREASED [None]
  - CONSTIPATION [None]
  - DIZZINESS [None]
  - DYSPNOEA [None]
  - HYPOGLYCAEMIA [None]
  - NAUSEA [None]
  - MALNUTRITION [None]
  - ASTHENIA [None]
  - CLOSTRIDIAL INFECTION [None]
  - LEUKOCYTOSIS [None]
  - RENAL FAILURE ACUTE [None]
